FAERS Safety Report 15370495 (Version 1)
Quarter: 2018Q3

REPORT INFORMATION
  Report Type: Report from Study
  Country: US (occurrence: US)
  Receive Date: 20180911
  Receipt Date: 20180911
  Transmission Date: 20181010
  Serious: Yes (Other)
  Sender: FDA-Public Use
  Company Number: US-GILEAD-2018-0361719

PATIENT
  Age: 67 Year
  Sex: Female

DRUGS (1)
  1. AMBRISENTAN [Suspect]
     Active Substance: AMBRISENTAN
     Indication: PRODUCT USED FOR UNKNOWN INDICATION
     Dosage: 10 MG, UNK
     Route: 065

REACTIONS (7)
  - Pruritus [Unknown]
  - Nasal congestion [Unknown]
  - Oedema peripheral [Unknown]
  - Headache [Unknown]
  - Dyspnoea [Unknown]
  - Hepatic cirrhosis [Unknown]
  - Weight increased [Unknown]

NARRATIVE: CASE EVENT DATE: 20180606
